APPROVED DRUG PRODUCT: ERYTHROMYCIN LACTOBIONATE
Active Ingredient: ERYTHROMYCIN LACTOBIONATE
Strength: EQ 1GM BASE/VIAL
Dosage Form/Route: INJECTABLE;INJECTION
Application: A062604 | Product #002
Applicant: ABRAXIS PHARMACEUTICAL PRODUCTS
Approved: Nov 24, 1986 | RLD: No | RS: No | Type: DISCN